FAERS Safety Report 5743384-4 (Version None)
Quarter: 2008Q2

REPORT INFORMATION
  Report Type: 
  Country: None (occurrence: None)
  Receive Date: 20080515
  Receipt Date: 20080515
  Transmission Date: 20081010
  Serious: Yes (Hospitalization)
  Sender: FDA-Public Use
  Company Number: None

PATIENT
  Sex: Female
  Weight: 57.6 kg

DRUGS (3)
  1. ERLOTINIB - 150MG -GENETECH [Suspect]
     Indication: NON-SMALL CELL LUNG CANCER
     Dosage: 150MG ORALLY QD
     Route: 048
  2. DASATINIB - 70MG - BRISTOL-MYERS SQUIBB [Suspect]
     Indication: NON-SMALL CELL LUNG CANCER
     Dosage: 70MG ORALLY BID
     Route: 048
  3. DASATINIB - 70MG - BRISTOL-MYERS SQUIBB [Suspect]

REACTIONS (3)
  - DISEASE RECURRENCE [None]
  - MALIGNANT PLEURAL EFFUSION [None]
  - TACHYCARDIA [None]
